FAERS Safety Report 6992294-3 (Version None)
Quarter: 2010Q3

REPORT INFORMATION
  Report Type: 
  Country: None (occurrence: None)
  Receive Date: 20100917
  Receipt Date: 20100907
  Transmission Date: 20110219
  Serious: Yes (Death, Hospitalization, Other)
  Sender: FDA-Public Use
  Company Number: PHHY2009JP11766

PATIENT
  Sex: Female
  Weight: 45 kg

DRUGS (4)
  1. ICL670A ICL+DISTAB [Suspect]
     Indication: IRON OVERLOAD
     Dosage: 500 MG DAILY
     Route: 048
     Dates: start: 20090120, end: 20090215
  2. ICL670A ICL+DISTAB [Suspect]
     Indication: MYELODYSPLASTIC SYNDROME
  3. PRIMOBOLAN [Concomitant]
     Indication: MYELODYSPLASTIC SYNDROME
     Dosage: 15 MG
     Route: 048
     Dates: start: 20070612, end: 20090215
  4. BENET [Concomitant]
     Indication: MUSCULOSKELETAL PAIN
     Dosage: 17.5 MG
     Route: 048
     Dates: end: 20090215

REACTIONS (3)
  - CARDIAC FAILURE ACUTE [None]
  - GASTRIC ULCER [None]
  - GASTROINTESTINAL STROMAL TUMOUR [None]
